FAERS Safety Report 13041242 (Version 1)
Quarter: 2016Q4

REPORT INFORMATION
  Report Type: Spontaneous
  Country: US (occurrence: US)
  Receive Date: 20161219
  Receipt Date: 20161219
  Transmission Date: 20170207
  Serious: No
  Sender: FDA-Public Use
  Company Number: US-ROCHE-1066215

PATIENT
  Age: 62 Year
  Sex: Male
  Weight: 88.53 kg

DRUGS (1)
  1. ZELBORAF [Suspect]
     Active Substance: VEMURAFENIB
     Indication: METASTATIC MALIGNANT MELANOMA
     Route: 048
     Dates: start: 20120423

REACTIONS (12)
  - Myalgia [Unknown]
  - Swelling [Unknown]
  - Skin papilloma [Unknown]
  - Angina pectoris [Not Recovered/Not Resolved]
  - Chills [Unknown]
  - Arthralgia [Unknown]
  - Nausea [Unknown]
  - Hypoaesthesia [Not Recovered/Not Resolved]
  - Pyrexia [Unknown]
  - Sunburn [Unknown]
  - Skin mass [Unknown]
  - Alopecia [Unknown]

NARRATIVE: CASE EVENT DATE: 201207
